FAERS Safety Report 8245426-3 (Version None)
Quarter: 2012Q1

REPORT INFORMATION
  Report Type: 
  Country: None (occurrence: None)
  Receive Date: 20120329
  Receipt Date: 20120326
  Transmission Date: 20120608
  Serious: Yes (Death)
  Sender: FDA-Public Use
  Company Number: US-GILEAD-2012-0052762

PATIENT
  Sex: Male

DRUGS (4)
  1. LETAIRIS [Suspect]
     Indication: PRODUCT USED FOR UNKNOWN INDICATION
     Dosage: 10 MG, UNK
     Route: 048
     Dates: start: 20090226, end: 20120323
  2. VENTAVIS [Concomitant]
  3. REMODULIN [Concomitant]
  4. ADCIRCA [Concomitant]

REACTIONS (1)
  - CEREBROVASCULAR ACCIDENT [None]
